FAERS Safety Report 7786651-5 (Version None)
Quarter: 2011Q3

REPORT INFORMATION
  Report Type: 
  Country: None (occurrence: None)
  Receive Date: 20110929
  Receipt Date: 20110926
  Transmission Date: 20111222
  Serious: No
  Sender: FDA-Public Use
  Company Number: US-PFIZER INC-2011229782

PATIENT
  Sex: Female

DRUGS (1)
  1. IBUPROFEN (ADVIL) [Suspect]
     Indication: HEADACHE
     Dosage: UNK
     Dates: start: 20110926

REACTIONS (4)
  - SWOLLEN TONGUE [None]
  - LIP SWELLING [None]
  - OEDEMA MOUTH [None]
  - PRURITUS [None]
